FAERS Safety Report 8635145 (Version 4)
Quarter: 2013Q1

REPORT INFORMATION
  Report Type: Spontaneous
  Country: US (occurrence: None)
  Receive Date: 20120612
  Receipt Date: 20130322
  Transmission Date: 20140127
  Serious: Yes (Disabling)
  Sender: FDA-Public Use
  Company Number: CF 1913151

PATIENT
  Age: 54 Year
  Sex: Female

DRUGS (8)
  1. POLYETHYLENE GLYCOLS [Suspect]
     Indication: DRY EYE
     Dates: start: 2009, end: 2012
  2. ACUVUE OASYS SOFT LENSES FOR ASTIGMATISM [Concomitant]
  3. ALCON OPTIFREE REPLENISH MULTIPURPOSE SOLN [Concomitant]
  4. KOMBIGLYZE XR [Concomitant]
  5. LOSARTAN [Concomitant]
  6. METOPROLOL [Concomitant]
  7. ATORVASTATIN [Concomitant]
  8. AMLOPIDINE [Concomitant]

REACTIONS (7)
  - Keratitis fungal [None]
  - Fusarium infection [None]
  - Corneal scar [None]
  - Blindness unilateral [None]
  - Intraocular pressure increased [None]
  - Herpes ophthalmic [None]
  - Corneal transplant [None]
